FAERS Safety Report 18608480 (Version 1)
Quarter: 2020Q4

REPORT INFORMATION
  Report Type: Spontaneous
  Country: TR (occurrence: TR)
  Receive Date: 20201212
  Receipt Date: 20201212
  Transmission Date: 20210114
  Serious: Yes (Hospitalization, Other)
  Sender: FDA-Public Use
  Company Number: NVSC2020TR321911

PATIENT
  Age: 31 Year

DRUGS (1)
  1. FAMODIN [Suspect]
     Active Substance: FAMOTIDINE
     Indication: GASTROINTESTINAL DISORDER
     Dosage: 40 MG
     Route: 065
     Dates: start: 201911

REACTIONS (13)
  - Tinnitus [Unknown]
  - Formication [Unknown]
  - Anxiety [Unknown]
  - Platelet count increased [Unknown]
  - Asthenia [Unknown]
  - Suicidal ideation [Unknown]
  - Headache [Unknown]
  - Muscle twitching [Unknown]
  - Pain [Unknown]
  - Tachycardia [Unknown]
  - Depression [Unknown]
  - Arthralgia [Unknown]
  - Hypokinesia [Unknown]

NARRATIVE: CASE EVENT DATE: 202001
